FAERS Safety Report 18679294 (Version 2)
Quarter: 2021Q1

REPORT INFORMATION
  Report Type: Report from Study
  Country: None (occurrence: BE)
  Receive Date: 20201230
  Receipt Date: 20210102
  Transmission Date: 20210419
  Serious: Yes (Life-Threatening)
  Sender: FDA-Public Use
  Company Number: BE-ABBVIE-20K-013-3677108-00

PATIENT
  Age: 86 Day
  Sex: Female

DRUGS (3)
  1. DUODOPA [Suspect]
     Active Substance: CARBIDOPA\LEVODOPA
     Indication: PARKINSON^S DISEASE
     Dosage: UNKNOWN DOSAGES
     Route: 050
     Dates: start: 20091116, end: 20200526
  2. DUODOPA [Suspect]
     Active Substance: CARBIDOPA\LEVODOPA
     Dosage: MD= 0.5 ML, CD= 2.4 ML/HR DURING 16HRS, ED= 0.7 ML
     Route: 050
     Dates: start: 20200526, end: 20201216
  3. DUODOPA [Suspect]
     Active Substance: CARBIDOPA\LEVODOPA
     Dosage: MD= 0.5 ML, CD= 2.7 ML/HR DURING 16HRS, ED= 0.7 ML
     Route: 050
     Dates: start: 20201216

REACTIONS (4)
  - COVID-19 [Recovered/Resolved]
  - Muscle rigidity [Unknown]
  - Palliative care [Not Recovered/Not Resolved]
  - General physical health deterioration [Unknown]
